FAERS Safety Report 23305010 (Version 2)
Quarter: 2024Q3

REPORT INFORMATION
  Report Type: Spontaneous
  Country: IT (occurrence: IT)
  Receive Date: 20231218
  Receipt Date: 20240726
  Transmission Date: 20241017
  Serious: Yes (Other)
  Sender: AUROBINDO
  Company Number: IT-STADA-188450

PATIENT
  Age: 40 Year
  Sex: Male

DRUGS (22)
  1. ARIPIPRAZOLE [Suspect]
     Active Substance: ARIPIPRAZOLE
     Indication: Hypomania
     Dosage: 5 MILLIGRAM, ONCE A DAY
     Route: 065
     Dates: start: 201709, end: 2017
  2. ARIPIPRAZOLE [Suspect]
     Active Substance: ARIPIPRAZOLE
     Indication: Bipolar I disorder
     Dosage: 20 MILLIGRAM, ONCE A DAY
     Route: 065
     Dates: start: 201805
  3. ESCITALOPRAM [Suspect]
     Active Substance: ESCITALOPRAM OXALATE
     Indication: Bipolar I disorder
     Dosage: UNK
     Route: 065
  4. DELORAZEPAM [Suspect]
     Active Substance: DELORAZEPAM
     Indication: Bipolar I disorder
     Dosage: UNK
     Route: 065
  5. DULOXETINE [Suspect]
     Active Substance: DULOXETINE
     Indication: Bipolar I disorder
     Dosage: UNK
     Route: 065
  6. LAMOTRIGINE [Suspect]
     Active Substance: LAMOTRIGINE
     Indication: Bipolar I disorder
     Dosage: UNK
     Route: 065
  7. LORAZEPAM [Suspect]
     Active Substance: LORAZEPAM
     Indication: Bipolar I disorder
     Dosage: UNK
     Route: 065
  8. OLANZAPINE [Suspect]
     Active Substance: OLANZAPINE
     Indication: Bipolar I disorder
     Dosage: UNK
     Route: 065
  9. VALPROATE SODIUM [Suspect]
     Active Substance: VALPROATE SODIUM
     Indication: Bipolar I disorder
     Dosage: 1500 MILLIGRAM, DAILY
     Route: 065
     Dates: start: 201709
  10. VALPROATE SODIUM [Suspect]
     Active Substance: VALPROATE SODIUM
     Dosage: UNK
     Route: 065
     Dates: start: 201805
  11. QUETIAPINE [Suspect]
     Active Substance: QUETIAPINE
     Indication: Bipolar I disorder
     Dosage: 300 MILLIGRAM, ONCE A DAY
     Route: 065
     Dates: start: 201709
  12. VENLAFAXINE [Suspect]
     Active Substance: VENLAFAXINE HYDROCHLORIDE
     Indication: Bipolar I disorder
     Dosage: UNK
     Route: 065
  13. FLUOXETINE HYDROCHLORIDE [Suspect]
     Active Substance: FLUOXETINE HYDROCHLORIDE
     Indication: Bipolar I disorder
     Dosage: UNK
     Route: 065
  14. ADEMETIONINE [Suspect]
     Active Substance: ADEMETIONINE
     Indication: Bipolar I disorder
     Dosage: UNK
     Route: 065
  15. AMITRIPTYLINE [Suspect]
     Active Substance: AMITRIPTYLINE
     Indication: Bipolar I disorder
     Dosage: UNK
     Route: 065
  16. PERPHENAZINE [Suspect]
     Active Substance: PERPHENAZINE
     Indication: Bipolar I disorder
     Dosage: UNK
     Route: 065
  17. BRINTELLIX [Suspect]
     Active Substance: VORTIOXETINE HYDROBROMIDE
     Indication: Bipolar I disorder
     Dosage: UNK
     Route: 065
  18. DIETARY SUPPLEMENT [Suspect]
     Active Substance: DIETARY SUPPLEMENT
     Indication: Bipolar I disorder
     Dosage: UNK
     Route: 065
  19. AMITRIPTYLINE HYDROCHLORIDE\PERPHENAZINE [Suspect]
     Active Substance: AMITRIPTYLINE HYDROCHLORIDE\PERPHENAZINE
     Indication: Bipolar I disorder
     Route: 065
  20. VORTIOXETINE [Suspect]
     Active Substance: VORTIOXETINE HYDROBROMIDE
     Indication: Bipolar I disorder
     Dosage: UNK
     Route: 065
  21. HALOPERIDOL [Concomitant]
     Active Substance: HALOPERIDOL
     Indication: Bipolar I disorder
     Route: 065
  22. LITHIUM [Concomitant]
     Active Substance: LITHIUM
     Indication: Bipolar I disorder
     Dosage: UNK
     Route: 065

REACTIONS (4)
  - Gambling disorder [Recovered/Resolved]
  - Drug ineffective [Unknown]
  - Underdose [Unknown]
  - Therapeutic response decreased [Unknown]
